FAERS Safety Report 21008910 (Version 1)
Quarter: 2022Q2

REPORT INFORMATION
  Report Type: Spontaneous
  Country: JP (occurrence: JP)
  Receive Date: 20220627
  Receipt Date: 20220627
  Transmission Date: 20220721
  Serious: Yes (Hospitalization, Other)
  Sender: FDA-Public Use
  Company Number: JP-ELI_LILLY_AND_COMPANY-JP202206009982AA

PATIENT
  Age: 75 Year
  Sex: Female

DRUGS (1)
  1. FORTEO [Suspect]
     Active Substance: TERIPARATIDE
     Indication: Product used for unknown indication
     Dosage: UNK
     Route: 058
     Dates: start: 2019, end: 2020

REACTIONS (9)
  - Weight decreased [Unknown]
  - Hallucination, auditory [Unknown]
  - Hallucination [Unknown]
  - Persecutory delusion [Unknown]
  - Agitation [Unknown]
  - Delirium [Unknown]
  - Hypercalcaemia [Unknown]
  - Liver disorder [Unknown]
  - Basedow^s disease [Unknown]

NARRATIVE: CASE EVENT DATE: 20200101
